FAERS Safety Report 18694315 (Version 1)
Quarter: 2021Q1

REPORT INFORMATION
  Report Type: Spontaneous
  Country: US (occurrence: US)
  Receive Date: 20210101
  Receipt Date: 20210101
  Transmission Date: 20210419
  Serious: Yes (Hospitalization)
  Sender: FDA-Public Use
  Company Number: None

PATIENT
  Age: 54 Year
  Sex: Female

DRUGS (13)
  1. PREDNISONE. [Concomitant]
     Active Substance: PREDNISONE
  2. SUPREP BOWEL SOL [Concomitant]
  3. HUMIRA [Suspect]
     Active Substance: ADALIMUMAB
     Indication: CROHN^S DISEASE
     Dosage: ?          OTHER FREQUENCY:EVERY 2 WEEKS;?
     Route: 058
     Dates: start: 20200811
  4. OXYCODONE [Concomitant]
     Active Substance: OXYCODONE
  5. DIAZEPAM. [Concomitant]
     Active Substance: DIAZEPAM
  6. PROMETHAZINE [Concomitant]
     Active Substance: PROMETHAZINE HYDROCHLORIDE
  7. TIZANIDINE. [Concomitant]
     Active Substance: TIZANIDINE
  8. ZOLPIDEM [Concomitant]
     Active Substance: ZOLPIDEM TARTRATE
  9. SUCRALFATE. [Concomitant]
     Active Substance: SUCRALFATE
  10. DICLOFENAC GEL [Concomitant]
     Active Substance: DICLOFENAC
  11. FLUCONAZOLE. [Concomitant]
     Active Substance: FLUCONAZOLE
  12. CYCLOBENZAPR [Concomitant]
     Active Substance: CYCLOBENZAPRINE
  13. FENTANYL. [Concomitant]
     Active Substance: FENTANYL

REACTIONS (9)
  - Nausea [None]
  - Vomiting [None]
  - Weight fluctuation [None]
  - Arthralgia [None]
  - Diarrhoea [None]
  - Headache [None]
  - Fatigue [None]
  - Abdominal pain [None]
  - Sweating fever [None]

NARRATIVE: CASE EVENT DATE: 20201230
